FAERS Safety Report 8199795-3 (Version None)
Quarter: 2012Q1

REPORT INFORMATION
  Report Type: 
  Country: None (occurrence: None)
  Receive Date: 20120312
  Receipt Date: 20120301
  Transmission Date: 20120608
  Serious: Yes (Other)
  Sender: FDA-Public Use
  Company Number: LB-BIOGENIDEC-2012BI007434

PATIENT
  Age: 21 Year
  Sex: Female

DRUGS (1)
  1. TYSABRI [Suspect]
     Indication: MULTIPLE SCLEROSIS
     Route: 042
     Dates: start: 20100901, end: 20111201

REACTIONS (3)
  - ABDOMINAL PAIN [None]
  - DYSURIA [None]
  - DIARRHOEA [None]
